FAERS Safety Report 24890683 (Version 1)
Quarter: 2025Q1

REPORT INFORMATION
  Report Type: Spontaneous
  Country: US (occurrence: None)
  Receive Date: 20250123
  Receipt Date: 20250123
  Transmission Date: 20250408
  Serious: No
  Sender: FDA-CTU
  Company Number: None

PATIENT

DRUGS (1)
  1. OCREVUS [Suspect]
     Active Substance: OCRELIZUMAB

REACTIONS (6)
  - Fall [None]
  - Lower limb fracture [None]
  - Multiple sclerosis relapse [None]
  - Hot flush [None]
  - Cerebral disorder [None]
  - General physical health deterioration [None]
